FAERS Safety Report 4688751-5 (Version None)
Quarter: 2005Q2

REPORT INFORMATION
  Report Type: 
  Country: None (occurrence: None)
  Receive Date: 20050609
  Receipt Date: 20050609
  Transmission Date: 20051028
  Serious: Yes (Hospitalization)
  Sender: FDA-Public Use
  Company Number: None

PATIENT
  Age: 43 Year
  Sex: Female
  Weight: 57 kg

DRUGS (4)
  1. DOXORUBICIN [Suspect]
     Indication: BREAST CANCER
     Dates: start: 20041001
  2. NASONEX [Concomitant]
  3. ADVAIR [Concomitant]
  4. ALBUTEROL [Concomitant]

REACTIONS (1)
  - CARDIOMYOPATHY [None]
